FAERS Safety Report 7986409-8 (Version None)
Quarter: 2011Q4

REPORT INFORMATION
  Report Type: 
  Country: None (occurrence: None)
  Receive Date: 20111216
  Receipt Date: 20111012
  Transmission Date: 20120403
  Serious: No
  Sender: FDA-Public Use
  Company Number: US-GLAXOSMITHKLINE-A0948825A

PATIENT
  Age: 82 Year
  Sex: Female

DRUGS (7)
  1. BETA-BLOCKERS [Concomitant]
  2. COZAAR [Concomitant]
  3. XANAX [Concomitant]
  4. PRANDIN [Concomitant]
  5. HYTRIN [Concomitant]
  6. BETAPACE [Concomitant]
  7. COREG CR [Suspect]
     Indication: HYPERTENSION
     Dosage: 10MG PER DAY
     Route: 048
     Dates: start: 20110201, end: 20111009

REACTIONS (8)
  - BLOOD PRESSURE INCREASED [None]
  - ABASIA [None]
  - FAECES DISCOLOURED [None]
  - ASTHENIA [None]
  - NAUSEA [None]
  - DIARRHOEA [None]
  - MUSCULAR WEAKNESS [None]
  - FLATULENCE [None]
